FAERS Safety Report 4289720-X (Version None)
Quarter: 2004Q1

REPORT INFORMATION
  Report Type: 
  Country: None (occurrence: None)
  Receive Date: 20040126
  Receipt Date: 20030507
  Transmission Date: 20041129
  Serious: No
  Sender: FDA-Public Use
  Company Number: 03P-163-0217361-00

PATIENT
  Age: 62 Year
  Sex: Male

DRUGS (7)
  1. HYTRIN 10MG (HYTRIN) (TERAZOSIN HYDROCHLORIDE) (TERAZOSIN HYDROCHLORID [Suspect]
     Indication: BENIGN PROSTATIC HYPERPLASIA
     Dosage: 10 MG, 1 IN 1 D, PER ORAL
     Route: 048
     Dates: start: 19990101
  2. VARDENAFIL [Suspect]
     Indication: DRUG INTERACTION
     Dosage: 5 MG, 1 IN 1 D, PER ORAL
     Route: 048
     Dates: start: 20030314, end: 20030314
  3. PLACEBO [Suspect]
     Indication: DRUG INTERACTION
     Dosage: 1 IN 1 D, PER ORAL
     Route: 048
     Dates: start: 20030314, end: 20030314
  4. GINSEND [Concomitant]
  5. CALCIUM [Concomitant]
  6. FINASTERIDE [Concomitant]
  7. GINKOBILIBA [Concomitant]

REACTIONS (2)
  - DIZZINESS [None]
  - HYPOTENSION [None]
